FAERS Safety Report 18936580 (Version 2)
Quarter: 2021Q2

REPORT INFORMATION
  Report Type: Spontaneous
  Country: TR (occurrence: TR)
  Receive Date: 20210225
  Receipt Date: 20210618
  Transmission Date: 20210717
  Serious: Yes (Other)
  Sender: FDA-Public Use
  Company Number: TR-SUN PHARMACEUTICAL INDUSTRIES LTD-2021RR-282530

PATIENT
  Age: 80 Year
  Sex: Male

DRUGS (8)
  1. ASPIRIN. [Suspect]
     Active Substance: ASPIRIN
     Indication: COVID-19
     Dosage: 100 MILLIGRAM, QD
     Route: 065
  2. HYDROXYCHLOROQUINE [Suspect]
     Active Substance: HYDROXYCHLOROQUINE
     Dosage: 200 MILLIGRAM Q12H, FROM THE 3RD DOSE
     Route: 065
  3. VITAMIN C [Suspect]
     Active Substance: ASCORBIC ACID
     Indication: COVID-19
     Dosage: UNK
     Route: 065
  4. RANITIDINE. [Suspect]
     Active Substance: RANITIDINE
     Indication: COVID-19
     Dosage: 50 MILLIGRAM, Q24H
     Route: 065
  5. SODIUM CHLORIDE. [Suspect]
     Active Substance: SODIUM CHLORIDE
     Indication: COVID-19
     Dosage: UNK
     Route: 065
  6. DEXTROSE. [Suspect]
     Active Substance: DEXTROSE
     Indication: COVID-19
     Dosage: UNK
     Route: 065
  7. HYDROXYCHLOROQUINE [Suspect]
     Active Substance: HYDROXYCHLOROQUINE
     Indication: COVID-19
     Dosage: 400 MILLIGRAM, Q12H, ON FIRST DAY
     Route: 065
  8. VITAMIN B COMPLEX [Suspect]
     Active Substance: CYANOCOBALAMIN\DEXPANTHENOL\NIACINAMIDE\PYRIDOXINE HYDROCHLORIDE\RIBOFLAVIN 5^-PHOSPHATE SODIUM\THIAMINE HYDROCHLORIDE\VITAMIN B COMPLEX
     Indication: COVID-19
     Route: 065

REACTIONS (2)
  - Off label use [Unknown]
  - Blood creatine phosphokinase increased [Recovered/Resolved]
